FAERS Safety Report 24764029 (Version 3)
Quarter: 2025Q1

REPORT INFORMATION
  Report Type: Spontaneous
  Country: RO (occurrence: RO)
  Receive Date: 20241223
  Receipt Date: 20250123
  Transmission Date: 20250408
  Serious: Yes (Other)
  Sender: ALEXION PHARMACEUTICALS
  Company Number: RO-AstraZeneca-CH-00770435A

PATIENT
  Age: 68 Year
  Weight: 63 kg

DRUGS (1)
  1. DAPAGLIFLOZIN [Suspect]
     Active Substance: DAPAGLIFLOZIN

REACTIONS (3)
  - Dry mouth [Recovered/Resolved]
  - Antiphospholipid syndrome [Unknown]
  - Monoclonal gammopathy [Unknown]
